FAERS Safety Report 6685392-5 (Version None)
Quarter: 2010Q2

REPORT INFORMATION
  Report Type: 
  Country: None (occurrence: None)
  Receive Date: 20100416
  Receipt Date: 20100414
  Transmission Date: 20101027
  Serious: Yes (Other)
  Sender: FDA-Public Use
  Company Number: GB-AMGEN-US404708

PATIENT
  Age: 65 Year
  Sex: Female

DRUGS (2)
  1. ENBREL [Suspect]
     Indication: RHEUMATOID ARTHRITIS
     Dosage: UNKNOWN
     Route: 058
     Dates: start: 20030301, end: 20040419
  2. MELOXICAM [Concomitant]
     Dosage: UNKNOWN
     Route: 065
     Dates: start: 20030101, end: 20040419

REACTIONS (1)
  - TRANSIENT ISCHAEMIC ATTACK [None]
